FAERS Safety Report 5265939-6 (Version None)
Quarter: 2007Q1

REPORT INFORMATION
  Report Type: 
  Country: None (occurrence: None)
  Receive Date: 20070312
  Receipt Date: 20070312
  Transmission Date: 20070707
  Serious: Yes (Other)
  Sender: FDA-Public Use
  Company Number: None

PATIENT
  Age: 3 Year
  Sex: Male
  Weight: 18.1439 kg

DRUGS (1)
  1. POLYETHYLENE GLYCOL 3350 [Suspect]
     Indication: CONSTIPATION
     Dosage: 17 GRAMS 1 X PER DAY PO
     Route: 048
     Dates: start: 20050401, end: 20060610

REACTIONS (13)
  - ABNORMAL FAECES [None]
  - ARTHRALGIA [None]
  - CRYSTAL URINE PRESENT [None]
  - CYSTITIS [None]
  - DEVELOPMENTAL DELAY [None]
  - DYSURIA [None]
  - ESCHERICHIA INFECTION [None]
  - GROWTH RETARDATION [None]
  - PENILE DISCHARGE [None]
  - PHARMACEUTICAL PRODUCT COMPLAINT [None]
  - PURULENT DISCHARGE [None]
  - RECTAL PROLAPSE [None]
  - SPEECH DISORDER DEVELOPMENTAL [None]
